FAERS Safety Report 21776792 (Version 1)
Quarter: 2022Q4

REPORT INFORMATION
  Report Type: Spontaneous
  Country: DE (occurrence: DE)
  Receive Date: 20221226
  Receipt Date: 20221226
  Transmission Date: 20230112
  Serious: Yes (Other)
  Sender: FDA-Public Use
  Company Number: DE-SUN PHARMACEUTICAL INDUSTRIES LTD-2022RR-369888

PATIENT
  Age: 45 Year
  Sex: Male

DRUGS (4)
  1. OXALIPLATIN [Suspect]
     Active Substance: OXALIPLATIN
     Indication: Intestinal adenocarcinoma
     Dosage: UNK
     Route: 065
  2. IRINOTECAN [Suspect]
     Active Substance: IRINOTECAN
     Indication: Intestinal adenocarcinoma
     Dosage: UNK
     Route: 065
  3. LEUCOVORIN CALCIUM [Suspect]
     Active Substance: LEUCOVORIN CALCIUM
     Indication: Intestinal adenocarcinoma
     Dosage: UNK
     Route: 065
  4. FLUOROURACIL [Suspect]
     Active Substance: FLUOROURACIL
     Indication: Intestinal adenocarcinoma
     Dosage: UNK
     Route: 065

REACTIONS (2)
  - Disease progression [Unknown]
  - Drug ineffective [Unknown]
